FAERS Safety Report 18320084 (Version 1)
Quarter: 2020Q3

REPORT INFORMATION
  Report Type: Other
  Country: CA (occurrence: CA)
  Receive Date: 20200929
  Receipt Date: 20200929
  Transmission Date: 20201103
  Serious: Yes (Other)
  Sender: FDA-Public Use
  Company Number: CA-CELLTRION INC.-2020CA027393

PATIENT

DRUGS (8)
  1. AMLODIPINE [Concomitant]
     Active Substance: AMLODIPINE BESYLATE
     Dosage: 5 MILLIGRAM
     Route: 065
  2. BISOPROLOL [Concomitant]
     Active Substance: BISOPROLOL
  3. RITUXIMAB (UNKNOWN) [Suspect]
     Active Substance: RITUXIMAB
     Indication: RHEUMATOID ARTHRITIS
     Dosage: 1000 MILLIGRAM
     Route: 042
  4. CALCIUM/VITAMIN D3 [Concomitant]
     Dosage: 5 MILLIGRAM
     Route: 065
  5. SENOKOT [Concomitant]
     Active Substance: SENNOSIDES
  6. XELJANZ [Suspect]
     Active Substance: TOFACITINIB CITRATE
     Indication: PRODUCT USED FOR UNKNOWN INDICATION
     Route: 065
  7. ADVIL [IBUPROFEN] [Concomitant]
     Active Substance: IBUPROFEN
  8. RAMIPRIL. [Concomitant]
     Active Substance: RAMIPRIL

REACTIONS (5)
  - Cataract [Unknown]
  - Alopecia [Unknown]
  - Drug ineffective [Unknown]
  - Rheumatoid arthritis [Unknown]
  - Oedema peripheral [Unknown]
